FAERS Safety Report 16704159 (Version 2)
Quarter: 2019Q3

REPORT INFORMATION
  Report Type: Spontaneous
  Country: US (occurrence: US)
  Receive Date: 20190814
  Receipt Date: 20190829
  Transmission Date: 20191004
  Serious: Yes (Other)
  Sender: FDA-Public Use
  Company Number: US-BIOMARINAP-US-2019-125020

PATIENT
  Sex: Female
  Weight: 43 kg

DRUGS (1)
  1. VIMIZIM [Suspect]
     Active Substance: ELOSULFASE ALFA
     Indication: MUCOPOLYSACCHARIDOSIS IV
     Dosage: UNK, QW
     Route: 042
     Dates: start: 201403

REACTIONS (8)
  - Spinal fusion surgery [Unknown]
  - Spinal pain [Unknown]
  - Pain [Unknown]
  - Nerve injury [Unknown]
  - Arthritis [Unknown]
  - Neuralgia [Unknown]
  - Spinal laminectomy [Unknown]
  - Insomnia [Unknown]
